FAERS Safety Report 5725029-2 (Version None)
Quarter: 2008Q2

REPORT INFORMATION
  Report Type: 
  Country: None (occurrence: None)
  Receive Date: 20080429
  Receipt Date: 20080418
  Transmission Date: 20081010
  Serious: Yes (Death)
  Sender: FDA-Public Use
  Company Number: 080418-0000283

PATIENT
  Age: 8 Day
  Sex: Male

DRUGS (6)
  1. INDOMETHACIN [Suspect]
     Indication: PATENT DUCTUS ARTERIOSUS
     Dosage: 190 UG; ; IV
     Route: 042
     Dates: start: 20080304
  2. CEFUROXIME [Concomitant]
  3. FLOXACILLIN [Concomitant]
  4. FUROSEMIDE [Concomitant]
  5. PANCURONIUM BROMIDE [Concomitant]
  6. PHENOBARBITAL TAB [Concomitant]

REACTIONS (1)
  - RENAL IMPAIRMENT [None]
